FAERS Safety Report 10344258 (Version 1)
Quarter: 2014Q3

REPORT INFORMATION
  Report Type: Spontaneous
  Country: MX (occurrence: MX)
  Receive Date: 20140728
  Receipt Date: 20140728
  Transmission Date: 20150326
  Serious: Yes (Death)
  Sender: FDA-Public Use
  Company Number: MX-UCBSA-2014006343

PATIENT
  Age: 72 Year
  Sex: Female

DRUGS (1)
  1. VIMPAT [Suspect]
     Active Substance: LACOSAMIDE
     Dosage: 150 MG, 2X/DAY (BID), EVERY 12 HOURS
     Route: 048
     Dates: start: 20110809

REACTIONS (1)
  - Death [Fatal]

NARRATIVE: CASE EVENT DATE: 20140710
